FAERS Safety Report 5754871-7 (Version None)
Quarter: 2008Q2

REPORT INFORMATION
  Report Type: 
  Country: None (occurrence: None)
  Receive Date: 20080527
  Receipt Date: 20080507
  Transmission Date: 20081010
  Serious: Yes (Death)
  Sender: FDA-Public Use
  Company Number: 2008AL003872

PATIENT
  Age: 82 Year
  Sex: Female

DRUGS (3)
  1. DIGOXIN [Suspect]
     Indication: ATRIAL FIBRILLATION
     Dosage: PO
     Route: 048
     Dates: start: 20070801
  2. COUMADIN [Concomitant]
  3. THYROID TAB [Concomitant]

REACTIONS (4)
  - BRAIN DEATH [None]
  - FALL [None]
  - HAEMORRHAGE [None]
  - UNRESPONSIVE TO STIMULI [None]
